FAERS Safety Report 6784220-7 (Version None)
Quarter: 2010Q2

REPORT INFORMATION
  Report Type: 
  Country: None (occurrence: None)
  Receive Date: 20100617
  Receipt Date: 20100601
  Transmission Date: 20101027
  Serious: Yes (Other)
  Sender: FDA-Public Use
  Company Number: ACO_01108_2010

PATIENT
  Age: 70 Year
  Sex: Female

DRUGS (5)
  1. TERNELIN (TERNELIN - TIZANDINE HYDROCHLORIDE) (NOT SPECIFIED) [Suspect]
     Indication: DRUG USE FOR UNKNOWN INDICATION
     Dosage: (DF ORAL)
     Route: 048
  2. LUVOX [Suspect]
     Indication: DRUG USE FOR UNKNOWN INDICATION
     Dosage: (DF ORAL)
     Route: 048
  3. DIOVAN [Concomitant]
  4. DOXAZOSIN MESYLATE [Concomitant]
  5. ARTIST [Concomitant]

REACTIONS (1)
  - BLOOD PRESSURE INCREASED [None]
